FAERS Safety Report 10209960 (Version 1)
Quarter: 2014Q2

REPORT INFORMATION
  Report Type: Spontaneous
  Country: IT (occurrence: IT)
  Receive Date: 20140602
  Receipt Date: 20140602
  Transmission Date: 20141212
  Serious: Yes (Hospitalization)
  Sender: FDA-Public Use
  Company Number: IT-RANBAXY-2014RR-81664

PATIENT
  Age: 71 Year
  Sex: Female

DRUGS (3)
  1. PARACETAMOL [Suspect]
     Indication: HYPERPYREXIA
     Dosage: 3 G, DAILY
     Route: 048
     Dates: start: 20140423, end: 20140430
  2. LEVETIRACETAM [Concomitant]
     Indication: PRODUCT USED FOR UNKNOWN INDICATION
     Dosage: UNK
     Route: 065
  3. AMLODIPINE [Concomitant]
     Indication: PRODUCT USED FOR UNKNOWN INDICATION
     Dosage: UNK
     Route: 065

REACTIONS (1)
  - Toxicity to various agents [Recovered/Resolved]
